FAERS Safety Report 5275179-2 (Version None)
Quarter: 2007Q1

REPORT INFORMATION
  Report Type: 
  Country: None (occurrence: None)
  Receive Date: 20070320
  Receipt Date: 20070308
  Transmission Date: 20070707
  Serious: Yes (Hospitalization)
  Sender: FDA-Public Use
  Company Number: 2007-155720-NL

PATIENT
  Age: 43 Year
  Sex: Female

DRUGS (2)
  1. MENOTROPINS [Suspect]
     Indication: OVULATION INDUCTION
     Dosage: DF NI
  2. CLOMIPHENE CITRATE [Suspect]
     Indication: OVULATION INDUCTION
     Dosage: DF NI

REACTIONS (5)
  - ABORTION INDUCED [None]
  - AMNIOCENTESIS ABNORMAL [None]
  - CONJOINED TWINS [None]
  - DRUG EXPOSURE DURING PREGNANCY [None]
  - TWIN PREGNANCY [None]
